FAERS Safety Report 5097547-4 (Version None)
Quarter: 2006Q3

REPORT INFORMATION
  Report Type: 
  Country: None (occurrence: None)
  Receive Date: 20060901
  Receipt Date: 20060824
  Transmission Date: 20061208
  Serious: Yes (Other)
  Sender: FDA-Public Use
  Company Number: 028-20785-06081223

PATIENT
  Sex: Female

DRUGS (2)
  1. THALOMID [Suspect]
     Indication: MULTIPLE MYELOMA
     Dosage: SEE IMAGE
     Route: 048
  2. PREDNISONE TAB [Suspect]
     Indication: MULTIPLE MYELOMA

REACTIONS (5)
  - GLOSSODYNIA [None]
  - HYPOSMIA [None]
  - ORAL CANDIDIASIS [None]
  - PRODUCTIVE COUGH [None]
  - RESPIRATORY TRACT INFECTION [None]
